FAERS Safety Report 19578761 (Version 1)
Quarter: 2021Q3

REPORT INFORMATION
  Report Type: Other
  Country: US (occurrence: US)
  Receive Date: 20210720
  Receipt Date: 20210720
  Transmission Date: 20211014
  Serious: No
  Sender: FDA-Public Use
  Company Number: US-NEUROCRINE BIOSCIENCES INC.-2021NBI03773

PATIENT

DRUGS (7)
  1. IRBESARTAN. [Concomitant]
     Active Substance: IRBESARTAN
     Dosage: UNK
  2. ONGENTYS [Suspect]
     Active Substance: OPICAPONE
     Indication: PARKINSON^S DISEASE
     Dosage: 50 MILLIGRAM, QD
     Route: 048
     Dates: start: 202104
  3. RAPAFLO [Concomitant]
     Active Substance: SILODOSIN
     Dosage: UNK
  4. CARBIDOPA/LEVODOPA [Concomitant]
     Active Substance: CARBIDOPA\LEVODOPA
     Dosage: UNK
  5. ENTACAPONE. [Concomitant]
     Active Substance: ENTACAPONE
     Dosage: UNK
  6. FINASTERIDE. [Concomitant]
     Active Substance: FINASTERIDE
     Dosage: UNK
  7. PANTOPRAZOLE [Concomitant]
     Active Substance: PANTOPRAZOLE
     Dosage: UNK

REACTIONS (2)
  - Nocturia [Unknown]
  - Insomnia [Unknown]

NARRATIVE: CASE EVENT DATE: 2021
